FAERS Safety Report 19931085 (Version 5)
Quarter: 2023Q1

REPORT INFORMATION
  Report Type: Report from Study
  Country: GB (occurrence: GB)
  Receive Date: 20211007
  Receipt Date: 20230123
  Transmission Date: 20230417
  Serious: Yes (Death, Hospitalization)
  Sender: FDA-Public Use
  Company Number: GB-NOVARTISPH-NVSC2021GB227156

PATIENT
  Age: 78 Year
  Sex: Male
  Weight: 78 kg

DRUGS (9)
  1. INDAPAMIDE [Suspect]
     Active Substance: INDAPAMIDE
     Indication: Product used for unknown indication
     Dosage: UNK
     Route: 065
     Dates: end: 20210619
  2. INCLISIRAN [Suspect]
     Active Substance: INCLISIRAN
     Indication: Arteriosclerosis
     Dosage: UNK
     Route: 058
     Dates: end: 20211001
  3. INCLISIRAN [Suspect]
     Active Substance: INCLISIRAN
     Indication: Arteriosclerosis
     Dosage: 300 MG, EVERY 6 MONTHS
     Route: 058
     Dates: start: 20190719, end: 20210428
  4. ROSUVASTATIN [Concomitant]
     Active Substance: ROSUVASTATIN
     Indication: Product used for unknown indication
     Dosage: 20 MG, QD
     Route: 048
     Dates: start: 20060515, end: 20210908
  5. DIGOXIN [Concomitant]
     Active Substance: DIGOXIN
     Indication: Cardiac failure
     Dosage: 62.5 UG, QD
     Route: 048
     Dates: start: 20210820
  6. FUROSEMIDE [Concomitant]
     Active Substance: FUROSEMIDE
     Indication: Cardiac failure
     Dosage: 40 MG, QD
     Route: 048
  7. OMEPRAZOLE [Concomitant]
     Active Substance: OMEPRAZOLE
     Indication: Product used for unknown indication
     Dosage: UNK
     Route: 065
  8. LISINOPRIL [Concomitant]
     Active Substance: LISINOPRIL
     Indication: Product used for unknown indication
     Dosage: UNK
     Route: 065
     Dates: end: 20210728
  9. FERROUS SULFATE [Concomitant]
     Active Substance: FERROUS SULFATE
     Indication: Iron deficiency anaemia
     Dosage: 200 MG, BID
     Route: 048
     Dates: start: 20210709

REACTIONS (6)
  - Paraneoplastic syndrome [Not Recovered/Not Resolved]
  - Hyponatraemia [Recovering/Resolving]
  - Non-small cell lung cancer [Fatal]
  - Pulmonary embolism [Fatal]
  - Deep vein thrombosis [Fatal]
  - Pneumothorax [Fatal]

NARRATIVE: CASE EVENT DATE: 20210619
